FAERS Safety Report 20189661 (Version 12)
Quarter: 2022Q4

REPORT INFORMATION
  Report Type: Report from Study
  Country: DE (occurrence: DE)
  Receive Date: 20211215
  Receipt Date: 20221226
  Transmission Date: 20230113
  Serious: Yes (Life-Threatening, Hospitalization)
  Sender: FDA-Public Use
  Company Number: DE-EXELIXIS-XL18421047305

PATIENT

DRUGS (26)
  1. CABOZANTINIB [Suspect]
     Active Substance: CABOZANTINIB
     Indication: Metastatic renal cell carcinoma
     Dosage: 60 MG, QD
     Route: 048
     Dates: start: 20210420
  2. CABOZANTINIB [Suspect]
     Active Substance: CABOZANTINIB
     Dosage: 20 MG
     Route: 048
  3. ATEZOLIZUMAB [Suspect]
     Active Substance: ATEZOLIZUMAB
     Indication: Metastatic renal cell carcinoma
     Dosage: 1200 MG, Q3WEEKS
     Route: 041
     Dates: start: 20210420
  4. CELECOXIB [Suspect]
     Active Substance: CELECOXIB
     Indication: Back pain
     Dosage: 100 MG, BID
     Route: 048
     Dates: start: 20210629, end: 20211018
  5. TRAMADOL [Concomitant]
     Active Substance: TRAMADOL
     Indication: Spinal pain
     Dosage: 200 MG, BID
     Route: 048
     Dates: start: 20210326
  6. CELEBREX [Concomitant]
     Active Substance: CELECOXIB
     Indication: Spinal pain
     Dosage: 100 MG, BID
     Route: 048
     Dates: start: 20210327
  7. DERMATOP [Concomitant]
     Active Substance: PREDNICARBATE
     Indication: Pruritus
     Dosage: 2.5 MG, 3 IN 1 WK
     Route: 061
     Dates: start: 20210512
  8. DERMATOP [Concomitant]
     Active Substance: PREDNICARBATE
     Indication: Erythema
  9. AMITRIPTYLINE [Concomitant]
     Active Substance: AMITRIPTYLINE
     Indication: Erythema
     Dosage: 1 IN 1 D
     Route: 048
     Dates: start: 20210512
  10. AMITRIPTYLINE [Concomitant]
     Active Substance: AMITRIPTYLINE
     Indication: Pruritus
  11. CALCIUM CARBONATE\SODIUM ALGINATE\SODIUM BICARBONATE [Concomitant]
     Active Substance: CALCIUM CARBONATE\SODIUM ALGINATE\SODIUM BICARBONATE
     Indication: Prophylaxis
     Dosage: 10 ML, BID
     Route: 048
     Dates: start: 20210511
  12. PROPRANOLOL HYDROCHLORIDE [Concomitant]
     Active Substance: PROPRANOLOL HYDROCHLORIDE
     Indication: Hyperthyroidism
     Dosage: 10 MG, TID
     Route: 048
     Dates: start: 20210602
  13. MISOPROSTOL [Concomitant]
     Active Substance: MISOPROSTOL
     Indication: Gastrooesophageal reflux disease
     Dosage: 200 UG, BID
     Route: 048
     Dates: start: 20210520
  14. LEVOTHYROXINE SODIUM [Concomitant]
     Active Substance: LEVOTHYROXINE SODIUM
     Indication: Hypothyroidism
     Dosage: 75 UG, QD
     Route: 048
     Dates: start: 20210714
  15. Cimetidin [Concomitant]
     Indication: Prophylaxis
     Dosage: 400 MG, BID
     Route: 048
     Dates: start: 20210714
  16. MICONAZOLE NITRATE [Concomitant]
     Active Substance: MICONAZOLE NITRATE
     Indication: Vulvovaginal candidiasis
     Dosage: 1 IN 1 D
     Route: 061
     Dates: start: 20210729
  17. HYDROMORPHONE [Concomitant]
     Active Substance: HYDROMORPHONE
     Indication: Back pain
     Dosage: 2 MG, BID
     Route: 048
     Dates: start: 20210915, end: 20211203
  18. Atosil [Concomitant]
     Indication: Insomnia
     Dosage: 25 MG, QD
     Route: 048
     Dates: start: 20211103, end: 20211118
  19. ACETAMINOPHEN [Concomitant]
     Active Substance: ACETAMINOPHEN
     Indication: Back pain
     Dosage: 1000 MG, TID
     Route: 048
     Dates: start: 20211201
  20. Unacid [Concomitant]
     Indication: Chills
     Dosage: 3 G, BID
     Route: 042
     Dates: start: 20211207
  21. PREDNISOLONE [Concomitant]
     Active Substance: PREDNISOLONE
     Indication: Acute kidney injury
  22. PANTOZOL [Concomitant]
     Active Substance: PANTOPRAZOLE SODIUM
     Dosage: 40 MG, QD
     Route: 048
     Dates: start: 20211013, end: 20211014
  23. METOCLOPRAMIDE [Concomitant]
     Active Substance: METOCLOPRAMIDE
     Dosage: 30 MG, QD
     Route: 048
     Dates: start: 20211013, end: 20211016
  24. NALOXONE HYDROCHLORIDE\TILIDINE HYDROCHLORIDE [Concomitant]
     Active Substance: NALOXONE HYDROCHLORIDE\TILIDINE HYDROCHLORIDE
     Indication: Spinal pain
     Dosage: 15 OTHER, 1 IN 1 AS REQUIRED
     Route: 048
     Dates: start: 20210111
  25. PANTOPRAZOLE [Concomitant]
     Active Substance: PANTOPRAZOLE
     Indication: Prophylaxis
     Dosage: 40 MG, QD
     Route: 048
     Dates: start: 20211220
  26. PFIZER-BIONTECH COVID-19 VACCINE [Concomitant]
     Active Substance: TOZINAMERAN
     Indication: COVID-19 prophylaxis

REACTIONS (3)
  - Nephritis [Recovered/Resolved]
  - Nephritis [Recovered/Resolved]
  - Mouth ulceration [Recovered/Resolved]

NARRATIVE: CASE EVENT DATE: 20211004
